FAERS Safety Report 17898603 (Version 1)
Quarter: 2020Q2

REPORT INFORMATION
  Report Type: Spontaneous
  Country: CA (occurrence: CA)
  Receive Date: 20200615
  Receipt Date: 20200615
  Transmission Date: 20200714
  Serious: Yes (Other)
  Sender: FDA-Public Use
  Company Number: NVSC2020CA165105

PATIENT
  Sex: Female

DRUGS (2)
  1. TOBREX [Suspect]
     Active Substance: TOBRAMYCIN
     Indication: EYE INFECTION
     Dosage: 0.3 %, QID
     Route: 061
  2. TOBREX [Suspect]
     Active Substance: TOBRAMYCIN
     Dosage: 0.3 %, BID
     Route: 061

REACTIONS (20)
  - Eyelid ptosis [Unknown]
  - Hypoaesthesia [Unknown]
  - Sinus pain [Unknown]
  - Swelling face [Unknown]
  - Condition aggravated [Unknown]
  - Dyspnoea [Unknown]
  - Soft tissue swelling [Unknown]
  - Muscle twitching [Unknown]
  - Skin exfoliation [Unknown]
  - Swelling of eyelid [Unknown]
  - Dry skin [Unknown]
  - Eyelid pain [Unknown]
  - Skin discolouration [Unknown]
  - Skin tightness [Unknown]
  - Eyelid irritation [Unknown]
  - Eye movement disorder [Unknown]
  - Product use complaint [Unknown]
  - Visual impairment [Unknown]
  - Discomfort [Unknown]
  - Eyelids pruritus [Unknown]
